FAERS Safety Report 26189158 (Version 1)
Quarter: 2025Q4

REPORT INFORMATION
  Report Type: Spontaneous
  Country: US (occurrence: US)
  Receive Date: 20251223
  Receipt Date: 20251223
  Transmission Date: 20260117
  Serious: No
  Sender: Thea Pharma
  Company Number: US-THEA-2025002735

PATIENT
  Sex: Female
  Weight: 53.5 kg

DRUGS (1)
  1. IYUZEH [Suspect]
     Active Substance: LATANOPROST
     Indication: Glaucoma
     Dosage: ON RIGHT EYE BEFORE BEDTIME
     Route: 047
     Dates: start: 2025

REACTIONS (2)
  - Expired product administered [Unknown]
  - Product storage error [Unknown]
